FAERS Safety Report 9915069 (Version 1)
Quarter: 2014Q1

REPORT INFORMATION
  Report Type: Report from Study
  Country: US (occurrence: US)
  Receive Date: 20140220
  Receipt Date: 20140220
  Transmission Date: 20141002
  Serious: Yes (Other)
  Sender: FDA-Public Use
  Company Number: US-ABBVIE-14P-163-1201759-00

PATIENT
  Age: 63 Year
  Sex: Female

DRUGS (32)
  1. HUMIRA [Suspect]
     Indication: RHEUMATOID ARTHRITIS
     Dates: start: 20130828, end: 20130925
  2. HUMIRA [Suspect]
     Indication: SPONDYLOARTHROPATHY
     Dates: start: 20131023
  3. HUMIRA [Suspect]
     Dates: start: 20140104
  4. CLINDAMYCIN [Suspect]
     Indication: SINUSITIS
  5. FENTANYL [Concomitant]
     Indication: PRODUCT USED FOR UNKNOWN INDICATION
     Dosage: PATCH
  6. NORCO [Concomitant]
     Indication: PAIN
  7. FLONASE [Concomitant]
     Indication: PRODUCT USED FOR UNKNOWN INDICATION
     Route: 045
  8. AZELASTINE [Concomitant]
     Indication: PRODUCT USED FOR UNKNOWN INDICATION
  9. DR NEIL^S SINUS RINSE [Concomitant]
     Indication: PRODUCT USED FOR UNKNOWN INDICATION
  10. SALINE [Concomitant]
     Indication: SINUS DISORDER
  11. FLOVENT [Concomitant]
     Indication: PRODUCT USED FOR UNKNOWN INDICATION
  12. ALBUTEROL [Concomitant]
     Indication: PRODUCT USED FOR UNKNOWN INDICATION
  13. MONTELUKAST SODIUM [Concomitant]
     Indication: ASTHMA
  14. ATORVASTATIN [Concomitant]
     Indication: BLOOD CHOLESTEROL INCREASED
  15. ZETIA [Concomitant]
     Indication: BLOOD CHOLESTEROL INCREASED
  16. DULOXETINE HYDROCHLORIDE [Concomitant]
     Indication: DEPRESSION
  17. VENLAFAXINE [Concomitant]
     Indication: DEPRESSION
  18. LEVOTHYROXINE [Concomitant]
     Indication: HYPOTHYROIDISM
  19. HYOSCYAMINE [Concomitant]
     Indication: IRRITABLE BOWEL SYNDROME
  20. GABAPENTIN [Concomitant]
     Indication: PAIN
  21. ALPRAZOLAM [Concomitant]
     Indication: ANXIETY
  22. ESTRADIOL [Concomitant]
     Indication: HORMONE REPLACEMENT THERAPY
  23. PREVACID [Concomitant]
     Indication: GASTROOESOPHAGEAL REFLUX DISEASE
  24. BABY ASPIRIN [Concomitant]
     Indication: PROPHYLAXIS
  25. BENADRYL [Concomitant]
     Indication: HYPERSENSITIVITY
     Dosage: 2-3 TIMES A DAY AS NEEDED
  26. PREDNISONE [Concomitant]
     Indication: INFLAMMATION
     Dosage: 5-20 MG A DAY AS NEEDED
  27. FUROSEMIDE [Concomitant]
     Indication: SWELLING
  28. MUCINEX [Concomitant]
     Indication: SINUS CONGESTION
  29. INSULIN [Concomitant]
     Indication: TYPE 1 DIABETES MELLITUS
  30. OCCUFLOW [Concomitant]
     Indication: DRY EYE
     Dosage: SCRUB EYES
  31. OCCUFLOW [Concomitant]
     Indication: BLEPHARITIS
  32. VITAMIN D [Concomitant]
     Indication: VITAMIN D DECREASED

REACTIONS (15)
  - Concussion [Unknown]
  - Blister [Recovered/Resolved]
  - Fall [Not Recovered/Not Resolved]
  - Head injury [Not Recovered/Not Resolved]
  - Stevens-Johnson syndrome [Recovered/Resolved]
  - Abdominal pain upper [Recovered/Resolved]
  - Drug ineffective [Unknown]
  - Sebaceous gland infection [Not Recovered/Not Resolved]
  - Sinusitis [Recovered/Resolved]
  - Memory impairment [Not Recovered/Not Resolved]
  - Malaise [Not Recovered/Not Resolved]
  - Sinusitis [Recovered/Resolved]
  - Asthenia [Not Recovered/Not Resolved]
  - Chronic sinusitis [Recovered/Resolved]
  - Fatigue [Not Recovered/Not Resolved]
